FAERS Safety Report 5794733-2 (Version None)
Quarter: 2008Q2

REPORT INFORMATION
  Report Type: 
  Country: None (occurrence: None)
  Receive Date: 20080630
  Receipt Date: 20080616
  Transmission Date: 20081010
  Serious: Yes (Hospitalization)
  Sender: FDA-Public Use
  Company Number: GB-AVENTIS-200815295GDDC

PATIENT
  Age: 69 Year
  Sex: Male

DRUGS (6)
  1. RIFAMPICIN [Suspect]
     Dates: start: 20030501
  2. CLOPIDOGREL [Suspect]
  3. CLARITHROMYCIN [Suspect]
     Dates: start: 20030501
  4. ETHAMBUTOL HYDROCHLORIDE [Suspect]
     Dates: start: 20030501
  5. ABCIXIMAB [Concomitant]
  6. ASPIRIN [Concomitant]

REACTIONS (2)
  - DRUG INTERACTION [None]
  - THROMBOSIS [None]
